FAERS Safety Report 6832610-6 (Version None)
Quarter: 2010Q3

REPORT INFORMATION
  Report Type: 
  Country: None (occurrence: None)
  Receive Date: 20100712
  Receipt Date: 20070315
  Transmission Date: 20110219
  Serious: No
  Sender: FDA-Public Use
  Company Number: US-PFIZER INC-2007021121

PATIENT
  Sex: Female
  Weight: 54.43 kg

DRUGS (2)
  1. CHANTIX [Suspect]
     Indication: SMOKING CESSATION THERAPY
     Dates: start: 20070223, end: 20070227
  2. LEVOXYL [Concomitant]
     Indication: THYROID DISORDER

REACTIONS (3)
  - FLATULENCE [None]
  - MIDDLE INSOMNIA [None]
  - MUSCLE SPASMS [None]
